FAERS Safety Report 19021228 (Version 7)
Quarter: 2021Q3

REPORT INFORMATION
  Report Type: Report from Study
  Country: US (occurrence: US)
  Receive Date: 20210317
  Receipt Date: 20210929
  Transmission Date: 20211014
  Serious: Yes (Other)
  Sender: FDA-Public Use
  Company Number: NVSC2021US060041

PATIENT
  Sex: Male

DRUGS (1)
  1. ENTRESTO [Suspect]
     Active Substance: SACUBITRIL\VALSARTAN
     Indication: PRODUCT USED FOR UNKNOWN INDICATION
     Dosage: UNK
     Route: 065

REACTIONS (8)
  - Weight increased [Recovering/Resolving]
  - Weight decreased [Unknown]
  - Dyskinesia [Unknown]
  - Chest pain [Recovering/Resolving]
  - Throat clearing [Recovering/Resolving]
  - Cardiac failure [Unknown]
  - Oxygen saturation decreased [Unknown]
  - Peripheral swelling [Not Recovered/Not Resolved]
